FAERS Safety Report 24857589 (Version 1)
Quarter: 2025Q1

REPORT INFORMATION
  Report Type: Spontaneous
  Country: US (occurrence: None)
  Receive Date: 20250117
  Receipt Date: 20250117
  Transmission Date: 20250409
  Serious: Yes (Other)
  Sender: FDA-CTU
  Company Number: None

PATIENT
  Age: 34 Year
  Sex: Female
  Weight: 65.25 kg

DRUGS (4)
  1. SAMNYTE TATTOO NUMBING CREAM [Suspect]
     Active Substance: LIDOCAINE
     Indication: Tattoo
     Route: 061
  2. VITAMIN D [Concomitant]
     Active Substance: VITAMIN D NOS
  3. FOLIC ACID [Concomitant]
     Active Substance: FOLIC ACID
  4. FLONASE [Concomitant]
     Active Substance: FLUTICASONE PROPIONATE

REACTIONS (2)
  - Syncope [None]
  - Syncope [None]

NARRATIVE: CASE EVENT DATE: 20250116
